FAERS Safety Report 11945128 (Version 1)
Quarter: 2016Q1

REPORT INFORMATION
  Report Type: Spontaneous
  Country: US (occurrence: US)
  Receive Date: 20160125
  Receipt Date: 20160125
  Transmission Date: 20160526
  Serious: No
  Sender: FDA-Public Use
  Company Number: US-SHIRE-US201600504

PATIENT
  Sex: Female
  Weight: 69.39 kg

DRUGS (2)
  1. GATTEX [Suspect]
     Active Substance: TEDUGLUTIDE\WATER
     Indication: SHORT-BOWEL SYNDROME
     Dosage: 0.3 ML, 1X/DAY:QD
     Route: 058
     Dates: end: 20151208
  2. GATTEX [Suspect]
     Active Substance: TEDUGLUTIDE\WATER
     Dosage: 0.3 ML, 1X/DAY:QD, FOR 5 DAYS
     Route: 058
     Dates: start: 20151208

REACTIONS (4)
  - Weight increased [Unknown]
  - Melanocytic naevus [Unknown]
  - Pain [Unknown]
  - Keloid scar [Unknown]
